FAERS Safety Report 17186544 (Version 1)
Quarter: 2019Q4

REPORT INFORMATION
  Report Type: Spontaneous
  Country: ES (occurrence: ES)
  Receive Date: 20191220
  Receipt Date: 20191220
  Transmission Date: 20200122
  Serious: Yes (Death)
  Sender: FDA-Public Use
  Company Number: ES-BIOGEN-2019BI00814288

PATIENT
  Age: 15 Year
  Sex: Female

DRUGS (1)
  1. SPINRAZA [Suspect]
     Active Substance: NUSINERSEN
     Indication: SPINAL MUSCULAR ATROPHY
     Dosage: INTRATHECAL AMPOULE
     Route: 037
     Dates: start: 20180411, end: 20191022

REACTIONS (2)
  - Acute respiratory failure [Fatal]
  - Spinal muscular atrophy [Fatal]
